FAERS Safety Report 11537327 (Version 3)
Quarter: 2015Q4

REPORT INFORMATION
  Report Type: Spontaneous
  Country: BR (occurrence: BR)
  Receive Date: 20150922
  Receipt Date: 20151217
  Transmission Date: 20160304
  Serious: Yes (Other)
  Sender: FDA-Public Use
  Company Number: BR-ABBVIE-15P-020-1467239-00

PATIENT
  Age: 9 Year
  Sex: Female
  Weight: 38 kg

DRUGS (1)
  1. LUPRON DEPOT [Suspect]
     Active Substance: LEUPROLIDE ACETATE
     Indication: PRECOCIOUS PUBERTY
     Route: 030
     Dates: start: 201501, end: 201508

REACTIONS (2)
  - Injection site abscess [Not Recovered/Not Resolved]
  - Injection site abscess [Recovering/Resolving]

NARRATIVE: CASE EVENT DATE: 201504
